FAERS Safety Report 6515495-7 (Version None)
Quarter: 2009Q4

REPORT INFORMATION
  Report Type: 
  Country: None (occurrence: None)
  Receive Date: 20091223
  Receipt Date: 20091217
  Transmission Date: 20100525
  Serious: Yes (Death, Hospitalization, Other)
  Sender: FDA-Public Use
  Company Number: PHEH2009US16531

PATIENT
  Sex: Female

DRUGS (15)
  1. EXJADE [Suspect]
     Dosage: 125 MG, QD
     Route: 048
     Dates: start: 20090409, end: 20090921
  2. FEMARA [Suspect]
     Dates: start: 20080401
  3. CARVEDILOL [Concomitant]
     Dosage: 6.25 MG, BID
  4. HYZAAR [Concomitant]
     Dosage: 160/25, UNK
  5. VITAMIN B-12 [Concomitant]
  6. VITAMIN E [Concomitant]
  7. CALCIUM WITH VITAMIN D [Concomitant]
  8. SELENIUM [Concomitant]
  9. THYROID TAB [Concomitant]
     Dosage: UNK, QD
  10. CITRACAL [Concomitant]
     Dosage: 125 MG, QD
  11. LASIX [Concomitant]
     Dosage: 40 MG, QD
  12. RESTORIL [Concomitant]
     Dosage: 15 MG, QHS
  13. LOSARTAN [Concomitant]
     Dosage: 100 MG, QD
  14. PANTOPRAZOLE [Concomitant]
     Dosage: 20 MG, QD
  15. OXYGEN [Concomitant]
     Dosage: UNK, PRN

REACTIONS (20)
  - ASTHENIA [None]
  - BLOOD PRODUCT TRANSFUSION DEPENDENT [None]
  - CARDIAC FAILURE CONGESTIVE [None]
  - CONFUSIONAL STATE [None]
  - COUGH [None]
  - DEATH [None]
  - DYSPNOEA [None]
  - EJECTION FRACTION DECREASED [None]
  - FATIGUE [None]
  - FLANK PAIN [None]
  - LEFT VENTRICULAR DYSFUNCTION [None]
  - MALIGNANT NEOPLASM PROGRESSION [None]
  - MYELODYSPLASTIC SYNDROME TRANSFORMATION [None]
  - NEPHROLITHIASIS [None]
  - OEDEMA PERIPHERAL [None]
  - ORTHOPNOEA [None]
  - RALES [None]
  - RENAL HYPOPLASIA [None]
  - RHONCHI [None]
  - URINARY INCONTINENCE [None]
